FAERS Safety Report 19440815 (Version 1)
Quarter: 2021Q2

REPORT INFORMATION
  Report Type: Spontaneous
  Country: US (occurrence: US)
  Receive Date: 20210621
  Receipt Date: 20210621
  Transmission Date: 20210717
  Serious: Yes (Hospitalization, Other)
  Sender: FDA-Public Use
  Company Number: US-LUPIN PHARMACEUTICALS INC.-2021-10207

PATIENT
  Age: 14 Year
  Sex: Male
  Weight: 73 kg

DRUGS (1)
  1. BUPROPION. [Suspect]
     Active Substance: BUPROPION
     Indication: PRODUCT USED FOR UNKNOWN INDICATION
     Dosage: 30 DOSAGE FORM (IMMEDIATE?RELEASE TABLETS)
     Route: 048

REACTIONS (6)
  - Serotonin syndrome [Recovering/Resolving]
  - Suicide attempt [Unknown]
  - Confusional state [Recovering/Resolving]
  - Agitation [Recovering/Resolving]
  - Intentional overdose [Unknown]
  - Seizure [Recovering/Resolving]
